FAERS Safety Report 19370002 (Version 1)
Quarter: 2021Q2

REPORT INFORMATION
  Report Type: Spontaneous
  Country: FR (occurrence: FR)
  Receive Date: 20210604
  Receipt Date: 20210604
  Transmission Date: 20210717
  Serious: Yes (Hospitalization)
  Sender: FDA-Public Use
  Company Number: FR-ETHYPHARM-2021000816

PATIENT
  Age: 53 Year
  Sex: Male

DRUGS (9)
  1. SERESTA [Suspect]
     Active Substance: OXAZEPAM
     Route: 048
     Dates: start: 20200109, end: 20200109
  2. TERCIAN [Suspect]
     Active Substance: CYAMEMAZINE
     Route: 048
     Dates: start: 20200109, end: 20200109
  3. ALCOOL [Suspect]
     Active Substance: ALCOHOL
     Dosage: 2L BI?RE/J
     Route: 048
  4. BUPRENORPHINE. [Suspect]
     Active Substance: BUPRENORPHINE
     Route: 048
     Dates: start: 20200109, end: 20200109
  5. COCAINE [Suspect]
     Active Substance: COCAINE
     Dosage: NON RENSEIGN?E
     Route: 065
     Dates: start: 20200109, end: 20200109
  6. SUBUTEX [Suspect]
     Active Substance: BUPRENORPHINE HYDROCHLORIDE
     Route: 048
     Dates: start: 20200109, end: 20200109
  7. DIAZEPAM. [Suspect]
     Active Substance: DIAZEPAM
     Route: 048
     Dates: start: 20200109, end: 20200109
  8. HEROIN [Suspect]
     Active Substance: DIAMORPHINE
     Dosage: NON RENSEIGN?E
     Route: 042
  9. TABAC (POUDRE DE) [Suspect]
     Active Substance: TOBACCO LEAF
     Dosage: 1 PAQUET/J
     Route: 055

REACTIONS (7)
  - Hypersensitivity pneumonitis [Recovering/Resolving]
  - Overdose [Recovering/Resolving]
  - Coma [Recovered/Resolved]
  - Hypoxia [Recovered/Resolved]
  - Miosis [Recovering/Resolving]
  - Rhabdomyolysis [Recovered/Resolved]
  - Drug abuse [Not Recovered/Not Resolved]

NARRATIVE: CASE EVENT DATE: 20200109
